FAERS Safety Report 7466389-4 (Version None)
Quarter: 2011Q2

REPORT INFORMATION
  Report Type: 
  Country: None (occurrence: None)
  Receive Date: 20110509
  Receipt Date: 20110426
  Transmission Date: 20111010
  Serious: Yes (Hospitalization, Other)
  Sender: FDA-Public Use
  Company Number: US-ACTELION-A-US2011-46482

PATIENT

DRUGS (12)
  1. OXYGEN [Concomitant]
  2. AMLODIPINE BESYLATE [Suspect]
  3. POTASSIUM CHLORIDE [Concomitant]
  4. METOPROLOL TARTRATE [Concomitant]
  5. TRACLEER [Suspect]
     Indication: PULMONARY ARTERIAL HYPERTENSION
     Dosage: 125 MG, BID
     Route: 048
     Dates: start: 20060525
  6. FUROSEMIDE [Concomitant]
  7. ZOCOR [Concomitant]
  8. VICODIN [Concomitant]
  9. MILK OF MAGNESIA TAB [Concomitant]
  10. ISOSORBIDE DINITRATE [Concomitant]
  11. ASPIRIN [Concomitant]
  12. CELEBREX [Concomitant]

REACTIONS (8)
  - KNEE OPERATION [None]
  - OEDEMA [None]
  - ARTHRALGIA [None]
  - JOINT EFFUSION [None]
  - LOSS OF CONSCIOUSNESS [None]
  - AORTIC ANEURYSM [None]
  - ARTHRITIS [None]
  - DYSPNOEA [None]
